FAERS Safety Report 13870664 (Version 2)
Quarter: 2017Q3

REPORT INFORMATION
  Report Type: Spontaneous
  Country: NL (occurrence: NL)
  Receive Date: 20170816
  Receipt Date: 20170926
  Transmission Date: 20171127
  Serious: Yes (Death)
  Sender: FDA-Public Use
  Company Number: NL-BAXTER-2017BAX028500

PATIENT
  Age: 70 Year
  Sex: Male

DRUGS (6)
  1. PHYSIONEAL 40 GLUCOSE 1.36% W/V / 13.6MG/ML OPLOSSING VOOR PERITONEALE [Suspect]
     Active Substance: CALCIUM CL\DEXTROSE\MAGNESIUM CL\SODIUM BICAR\SODIUM CL\SODIUM LACT
     Indication: PERITONEAL DIALYSIS
  2. EXTRANEAL [Suspect]
     Active Substance: CALCIUM CHLORIDE\ICODEXTRIN\MAGNESIUM CHLORIDE\SODIUM CHLORIDE\SODIUM LACTATE
     Indication: PERITONEAL DIALYSIS
  3. PHYSIONEAL 40 GLUCOSE 1.36% W/V / 13.6 MG/ML CLEAR-FLEX, OPLOSSING VOO [Suspect]
     Active Substance: CALCIUM CL\DEXTROSE\MAGNESIUM CL\SODIUM BICAR\SODIUM CL\SODIUM LACT
     Indication: END STAGE RENAL DISEASE
     Route: 033
  4. PHYSIONEAL 40 GLUCOSE 1.36% W/V / 13.6MG/ML OPLOSSING VOOR PERITONEALE [Suspect]
     Active Substance: CALCIUM CL\DEXTROSE\MAGNESIUM CL\SODIUM BICAR\SODIUM CL\SODIUM LACT
     Indication: END STAGE RENAL DISEASE
     Route: 033
  5. EXTRANEAL [Suspect]
     Active Substance: CALCIUM CHLORIDE\ICODEXTRIN\MAGNESIUM CHLORIDE\SODIUM CHLORIDE\SODIUM LACTATE
     Indication: END STAGE RENAL DISEASE
     Route: 033
  6. PHYSIONEAL 40 GLUCOSE 1.36% W/V / 13.6 MG/ML CLEAR-FLEX, OPLOSSING VOO [Suspect]
     Active Substance: CALCIUM CL\DEXTROSE\MAGNESIUM CL\SODIUM BICAR\SODIUM CL\SODIUM LACT
     Indication: PERITONEAL DIALYSIS

REACTIONS (1)
  - Death [Fatal]

NARRATIVE: CASE EVENT DATE: 20170714
